FAERS Safety Report 14240751 (Version 1)
Quarter: 2017Q4

REPORT INFORMATION
  Report Type: Spontaneous
  Country: US (occurrence: US)
  Receive Date: 20171130
  Receipt Date: 20171130
  Transmission Date: 20180321
  Serious: Yes (Hospitalization, Other)
  Sender: FDA-Public Use
  Company Number: US-MYLANLABS-2017M1075254

PATIENT
  Age: 32 Year
  Sex: Female

DRUGS (3)
  1. VORICONAZOLE. [Suspect]
     Active Substance: VORICONAZOLE
     Indication: BRONCHOPULMONARY ASPERGILLOSIS
     Dosage: UNK
     Route: 065
     Dates: start: 201512
  2. EVEROLIMUS. [Interacting]
     Active Substance: EVEROLIMUS
     Indication: HODGKIN^S DISEASE
     Dosage: 5 MG DAILY; THEN ADMINISTERED 10 MG DAILY
     Route: 048
     Dates: start: 201107
  3. EVEROLIMUS. [Interacting]
     Active Substance: EVEROLIMUS
     Dosage: 10 MG DAILY
     Route: 048
     Dates: start: 201107

REACTIONS (4)
  - Nephrotic syndrome [Recovered/Resolved]
  - Thrombotic microangiopathy [Recovered/Resolved]
  - Nephropathy [Recovered/Resolved]
  - Drug interaction [Recovered/Resolved]
